FAERS Safety Report 5282216-8 (Version None)
Quarter: 2007Q1

REPORT INFORMATION
  Report Type: 
  Country: None (occurrence: None)
  Receive Date: 20070330
  Receipt Date: 20070319
  Transmission Date: 20070707
  Serious: Yes (Other)
  Sender: FDA-Public Use
  Company Number: US-PFIZER INC-2007021137

PATIENT

DRUGS (2)
  1. GEODON [Suspect]
  2. ALL OTHER THERAPEUTIC PRODUCTS [Suspect]

REACTIONS (1)
  - ANAPHYLACTIC REACTION [None]
